FAERS Safety Report 5331675-0 (Version None)
Quarter: 2007Q2

REPORT INFORMATION
  Report Type: 
  Country: None (occurrence: None)
  Receive Date: 20070516
  Receipt Date: 20070503
  Transmission Date: 20071010
  Serious: Yes (Death, Life-Threatening, Other)
  Sender: FDA-Public Use
  Company Number: MC200700362

PATIENT
  Age: 74 Year
  Sex: Female

DRUGS (2)
  1. ANGIOMAX [Suspect]
     Indication: HEPARIN-INDUCED THROMBOCYTOPENIA
     Dosage: 0.21 MG/KG, HR (MEAN INITIATION DOSE), INTRAVENOUS, 0.2 MG/KG, HR (MAINTAINED MEAN DOSE), INTRAVENOU
     Route: 042
  2. ARGATROBAN [Concomitant]

REACTIONS (2)
  - INTESTINAL ISCHAEMIA [None]
  - PULMONARY EMBOLISM [None]
